FAERS Safety Report 11567639 (Version 1)
Quarter: 2015Q3

REPORT INFORMATION
  Report Type: Spontaneous
  Country: TR (occurrence: None)
  Receive Date: 20150925
  Receipt Date: 20150925
  Transmission Date: 20151125
  Serious: Yes (Other)
  Sender: FDA-Public Use
  Company Number: 2015HINLIT0690

PATIENT
  Age: 70 Year
  Sex: Female

DRUGS (1)
  1. ESCITALOPRAM [Suspect]
     Active Substance: ESCITALOPRAM OXALATE
     Indication: MAJOR DEPRESSION

REACTIONS (5)
  - Sinus bradycardia [None]
  - Cardiomyopathy [None]
  - Hypotension [None]
  - Presyncope [None]
  - Dizziness [None]
